FAERS Safety Report 4279995-5 (Version None)
Quarter: 2004Q1

REPORT INFORMATION
  Report Type: 
  Country: None (occurrence: None)
  Receive Date: 20040126
  Receipt Date: 20040112
  Transmission Date: 20041129
  Serious: Yes (Hospitalization)
  Sender: FDA-Public Use
  Company Number: 8005034

PATIENT
  Age: 26 Year
  Sex: Female
  Weight: 62 kg

DRUGS (12)
  1. LEVETIRACETAM [Suspect]
     Indication: PARTIAL SEIZURES
     Dosage: 500 MG 2/D PO
     Route: 048
     Dates: start: 20040106, end: 20040111
  2. LEVETIRACETAM [Suspect]
     Indication: PARTIAL SEIZURES
     Dosage: 500 MG PO
     Route: 048
     Dates: start: 20040101
  3. LAMOTRIGINE [Suspect]
     Indication: PARTIAL SEIZURES
     Dosage: 300 MG 2/D PO
     Route: 048
     Dates: start: 20020101, end: 20040106
  4. LAMOTRIGINE [Suspect]
     Indication: PARTIAL SEIZURES
     Dosage: 200 MG 2/D PO
     Route: 048
     Dates: start: 20040107, end: 20040109
  5. LAMOTRIGINE [Suspect]
     Indication: PARTIAL SEIZURES
     Dosage: 100 MG 2/D PO
     Route: 048
     Dates: start: 20040110, end: 20040111
  6. LAMOTRIGINE [Suspect]
     Indication: PARTIAL SEIZURES
     Dosage: 200 MG /D PO
     Route: 048
     Dates: start: 20040112, end: 20040115
  7. LAMOTRIGINE [Suspect]
     Indication: PARTIAL SEIZURES
     Dosage: 500 MG /D PO
     Route: 048
     Dates: start: 20040115
  8. CARBAMAZEPINE CR [Suspect]
     Indication: PARTIAL SEIZURES
     Dosage: 400 MG 2/D PO
     Route: 048
     Dates: start: 19550101, end: 20040106
  9. CLONAZEPAM [Concomitant]
  10. TRIMETHOPRIM [Concomitant]
  11. NAPROXEN [Concomitant]
  12. PARACETAMOL [Concomitant]

REACTIONS (12)
  - ATAXIA [None]
  - COMPLEX PARTIAL SEIZURES [None]
  - CONFUSIONAL STATE [None]
  - CONVULSION [None]
  - DRUG TOXICITY [None]
  - ELECTROENCEPHALOGRAM ABNORMAL [None]
  - ENCEPHALOPATHY [None]
  - HEADACHE [None]
  - HYPONATRAEMIA [None]
  - LEUKOPENIA [None]
  - NYSTAGMUS [None]
  - SOMNOLENCE [None]
